FAERS Safety Report 23085511 (Version 1)
Quarter: 2023Q4

REPORT INFORMATION
  Report Type: Spontaneous
  Country: US (occurrence: US)
  Receive Date: 20231019
  Receipt Date: 20231019
  Transmission Date: 20240109
  Serious: No
  Sender: FDA-Public Use
  Company Number: US-JAZZ PHARMACEUTICALS-2023-US-020859

PATIENT
  Sex: Female

DRUGS (3)
  1. XYWAV [Suspect]
     Active Substance: CALCIUM OXYBATE\MAGNESIUM OXYBATE\POTASSIUM OXYBATE\SODIUM OXYBATE
     Indication: Hypersomnia
     Dosage: 4.5 GRAM FIRST DOSE AND 1.25 GRAM SECOND DOSE
  2. MODAFINIL [Concomitant]
     Active Substance: MODAFINIL
     Dosage: 200 MG IN THE MORNING AND 50 MG IN THE AFTERNOON
  3. ZOFRAN [Concomitant]
     Active Substance: ONDANSETRON HYDROCHLORIDE
     Dosage: AS NEEDED

REACTIONS (3)
  - Sleep inertia [Unknown]
  - Sleep paralysis [Unknown]
  - Product dose omission issue [Unknown]
